FAERS Safety Report 7497197-6 (Version None)
Quarter: 2011Q2

REPORT INFORMATION
  Report Type: 
  Country: None (occurrence: None)
  Receive Date: 20110523
  Receipt Date: 20110518
  Transmission Date: 20111010
  Serious: Yes (Death)
  Sender: FDA-Public Use
  Company Number: CH-ASTRAZENECA-2011SE30165

PATIENT
  Age: 46 Year
  Sex: Female

DRUGS (6)
  1. SEROQUEL [Suspect]
     Route: 048
     Dates: start: 20101027, end: 20101030
  2. LAMICTAL [Suspect]
     Route: 048
     Dates: start: 20090101, end: 20101030
  3. ABILIFY [Suspect]
     Route: 048
     Dates: start: 20101022, end: 20101026
  4. CYMBALTA [Suspect]
     Route: 048
     Dates: start: 20100819, end: 20101030
  5. ABILIFY [Suspect]
     Route: 048
     Dates: start: 20100909, end: 20101007
  6. ABILIFY [Suspect]
     Route: 048
     Dates: start: 20100723, end: 20100908

REACTIONS (1)
  - COMPLETED SUICIDE [None]
